FAERS Safety Report 25921740 (Version 1)
Quarter: 2025Q4

REPORT INFORMATION
  Report Type: Spontaneous
  Country: EU (occurrence: EU)
  Receive Date: 20251014
  Receipt Date: 20251014
  Transmission Date: 20260118
  Serious: Yes (Other)
  Sender: SANDOZ
  Company Number: EU-SUN PHARMACEUTICAL INDUSTRIES LTD-2025RR-529417

PATIENT
  Age: 64 Year
  Sex: Male

DRUGS (6)
  1. INDAPAMIDE\TELMISARTAN [Concomitant]
     Active Substance: INDAPAMIDE\TELMISARTAN
     Indication: Product used for unknown indication
     Dosage: 80/2.5 MG
     Route: 065
  2. TAMSULOSIN [Concomitant]
     Active Substance: TAMSULOSIN
     Indication: Product used for unknown indication
     Dosage: 0.4 MILLIGRAM, UNK
     Route: 065
  3. ATORVASTATIN\EZETIMIBE [Interacting]
     Active Substance: ATORVASTATIN\EZETIMIBE
     Indication: Product used for unknown indication
     Dosage: 40/10 MG (STRENGTH-40/10MG)
     Route: 065
  4. CLARITHROMYCIN [Interacting]
     Active Substance: CLARITHROMYCIN
     Indication: Bronchitis
     Dosage: 500 MILLIGRAM, BID (STRENGTH-500MG)
     Route: 048
  5. DIETARY SUPPLEMENT\HERBALS\MILK THISTLE [Interacting]
     Active Substance: MILK THISTLE
     Indication: Product used for unknown indication
     Dosage: 150 MILLIGRAM, TID (STRENGTH-150MG)
     Route: 065
  6. RIVAROXABAN [Interacting]
     Active Substance: RIVAROXABAN
     Indication: Product used for unknown indication
     Dosage: 20 MILLIGRAM, UNK, STRENGTH-20MG
     Route: 065

REACTIONS (2)
  - Drug interaction [Unknown]
  - Haematuria [Unknown]
